FAERS Safety Report 11860695 (Version 1)
Quarter: 2015Q4

REPORT INFORMATION
  Report Type: Spontaneous
  Country: JP (occurrence: JP)
  Receive Date: 20151222
  Receipt Date: 20151222
  Transmission Date: 20160305
  Serious: Yes (Death)
  Sender: FDA-Public Use
  Company Number: JP-BAYER-2013-085994

PATIENT
  Age: 68 Year
  Sex: Female
  Weight: 52.5 kg

DRUGS (19)
  1. STIVARGA [Suspect]
     Active Substance: REGORAFENIB
     Indication: COLON CANCER
     Dosage: 80 MG, QD ON FOR 3 DAYS AND OFF FOR 1 WEEK
     Route: 048
     Dates: start: 20130926, end: 20131015
  2. STIVARGA [Suspect]
     Active Substance: REGORAFENIB
     Indication: COLON CANCER
     Dosage: 80 MG, QD ON FOR 3 DAYS AND OFF FOR 1 WEEK
     Route: 048
     Dates: start: 20131219, end: 20140108
  3. STIVARGA [Suspect]
     Active Substance: REGORAFENIB
     Indication: COLON CANCER
     Dosage: 80 MG, QD
     Route: 048
     Dates: start: 20140116, end: 20140204
  4. LASIX [Concomitant]
     Active Substance: FUROSEMIDE
     Dosage: DAILY DOSE 3 MG
     Route: 048
     Dates: end: 201403
  5. OLMETEC [Concomitant]
     Active Substance: OLMESARTAN MEDOXOMIL
     Dosage: DAILY DOSE 20 MG
     Route: 048
     Dates: end: 201403
  6. ZYLORIC [Concomitant]
     Active Substance: ALLOPURINOL
     Dosage: DAILY DOSE 100 MG
     Route: 048
     Dates: end: 201403
  7. SILECE [Concomitant]
     Active Substance: FLUNITRAZEPAM
     Dosage: DAILY DOSE 1 MG
     Route: 048
     Dates: end: 201403
  8. THYRADIN S [Concomitant]
     Active Substance: LEVOTHYROXINE SODIUM
     Dosage: DAILY DOSE 75 ?G
     Route: 048
     Dates: end: 201403
  9. STIVARGA [Suspect]
     Active Substance: REGORAFENIB
     Indication: COLON CANCER
     Dosage: 80 MG, QD ON FOR 3 DAYS AND OFF FOR 1 WEEK
     Route: 048
     Dates: start: 20131121, end: 20131210
  10. STIVARGA [Suspect]
     Active Substance: REGORAFENIB
     Indication: COLON CANCER
     Dosage: 160 MG, QD ON FOR 4 DAYS AND OFF FOR 7 DAYS
     Route: 048
     Dates: start: 20130703, end: 20130706
  11. STIVARGA [Suspect]
     Active Substance: REGORAFENIB
     Indication: COLON CANCER
     Dosage: 120 MG, QD ON FOR 18 DAYS AND OFF FOR 10 DAYS
     Route: 048
     Dates: start: 20130801, end: 20130818
  12. STIVARGA [Suspect]
     Active Substance: REGORAFENIB
     Indication: COLON CANCER
     Dosage: 80 MG, QD ON FOR 3 DAYS AND OFF FOR 1 WEEK
     Route: 048
     Dates: start: 20130829, end: 20130918
  13. HIRUDOID [Concomitant]
     Active Substance: GLYCOSAMINOGLYCANS
     Indication: DRUG TOXICITY PROPHYLAXIS
     Dosage: UNK
     Route: 061
     Dates: end: 20140210
  14. GLACTIV [Concomitant]
     Active Substance: SITAGLIPTIN
     Dosage: DAILY DOSE 50 MG
     Route: 048
     Dates: end: 201403
  15. FAMOTIDINE. [Concomitant]
     Active Substance: FAMOTIDINE
     Dosage: DAILY DOSE 20 MG
     Route: 048
     Dates: end: 201403
  16. STIVARGA [Suspect]
     Active Substance: REGORAFENIB
     Indication: COLON CANCER
     Dosage: 80 MG, QD ON FOR 3 DAYS AND OFF FOR 1 WEEK
     Route: 048
     Dates: start: 20131024, end: 20131112
  17. STIVARGA [Suspect]
     Active Substance: REGORAFENIB
     Indication: COLON CANCER
     Dosage: 120 MG, QD ON FOR 10 DAYS AND OFF FOR 8 DAYS
     Route: 048
     Dates: start: 20130714, end: 20130723
  18. URSO [Concomitant]
     Active Substance: URSODIOL
     Dosage: DAILY DOSE 300 MG
     Route: 048
     Dates: end: 201403
  19. NIVADIL [Concomitant]
     Active Substance: NILVADIPINE
     Dosage: DAILY DOSE 4 MG
     Route: 048
     Dates: end: 201403

REACTIONS (4)
  - Pyrexia [Recovering/Resolving]
  - Colon cancer [Fatal]
  - Malaise [Recovering/Resolving]
  - Palmar-plantar erythrodysaesthesia syndrome [Recovering/Resolving]

NARRATIVE: CASE EVENT DATE: 20130706
